FAERS Safety Report 10193659 (Version 1)
Quarter: 2014Q2

REPORT INFORMATION
  Report Type: Spontaneous
  Country: US (occurrence: US)
  Receive Date: 20140524
  Receipt Date: 20140524
  Transmission Date: 20141212
  Serious: No
  Sender: FDA-Public Use
  Company Number: US-SA-2013SA136120

PATIENT
  Age: 86 Year
  Sex: Female
  Weight: 77.5 kg

DRUGS (17)
  1. LANTUS SOLOSTAR [Suspect]
     Indication: TYPE 2 DIABETES MELLITUS
     Dosage: TAKEN FROM:MORE THAN SIX MONTHS DOSE:75 UNIT(S)
     Route: 058
  2. LANTUS SOLOSTAR [Suspect]
     Indication: TYPE 2 DIABETES MELLITUS
     Dosage: TAKEN FROM:MORE THAN SIX MONTHS DOSE:75 UNIT(S)
     Route: 058
  3. NOVOLOG [Suspect]
     Dosage: PER SLIDING SCALE. BREAKFAST?22-32 UNITS, LUNCH 22-32?UNITS DINNER 22-32 UNITS
     Route: 065
  4. SOLOSTAR [Concomitant]
  5. SOLOSTAR [Concomitant]
  6. GLUCOPHAGE [Concomitant]
  7. NORVASC [Concomitant]
     Route: 048
  8. TENORMIN [Concomitant]
     Route: 048
  9. CYANOCOBALAMIN [Concomitant]
     Route: 048
  10. ARICEPT [Concomitant]
     Route: 048
  11. GLUCAGON [Concomitant]
     Indication: EMERGENCY CARE
  12. NAMENDA [Concomitant]
     Dosage: PER SLIDING SCALE. BREAKFAST?22-32 UNITS, LUNCH 22-32?UNITS DINNER 22-32 UNITS
     Route: 048
  13. OLOPATADINE HYDROCHLORIDE [Concomitant]
     Route: 045
  14. ZOCOR [Concomitant]
     Indication: BLOOD CHOLESTEROL
     Route: 048
  15. TYLENOL [Concomitant]
     Route: 048
  16. VITAMIN D [Concomitant]
     Dosage: DOSE:2000 UNIT(S)
     Route: 048
  17. NEURONTIN [Concomitant]
     Indication: DIABETIC NEUROPATHY

REACTIONS (2)
  - Back pain [Unknown]
  - Glycosylated haemoglobin increased [Unknown]
